FAERS Safety Report 12821956 (Version 2)
Quarter: 2016Q4

REPORT INFORMATION
  Report Type: Spontaneous
  Country: US (occurrence: US)
  Receive Date: 20161007
  Receipt Date: 20161109
  Transmission Date: 20170207
  Serious: No
  Sender: FDA-Public Use
  Company Number: US-ASTRAZENECA-2016SF03469

PATIENT
  Age: 25008 Day
  Sex: Female

DRUGS (1)
  1. SYMBICORT [Suspect]
     Active Substance: BUDESONIDE\FORMOTEROL FUMARATE DIHYDRATE
     Dosage: 160/4.5 MCG, TWO PUFFS TWICE A DAY
     Route: 055
     Dates: start: 200709

REACTIONS (5)
  - Circumstance or information capable of leading to medication error [Unknown]
  - Dyspnoea [Unknown]
  - Drug dose omission [Unknown]
  - Product quality issue [Recovered/Resolved]
  - Drug ineffective [Recovered/Resolved]

NARRATIVE: CASE EVENT DATE: 20160708
